FAERS Safety Report 11595061 (Version 2)
Quarter: 2015Q4

REPORT INFORMATION
  Report Type: Report from Study
  Country: US (occurrence: US)
  Receive Date: 20151005
  Receipt Date: 20151010
  Transmission Date: 20160304
  Serious: Yes (Other)
  Sender: FDA-Public Use
  Company Number: US-009507513-1509USA011648

PATIENT

DRUGS (4)
  1. VICTRELIS [Suspect]
     Active Substance: BOCEPREVIR
     Indication: HEPATITIS C
     Dosage: UNK
     Route: 048
  2. INTERFERON ALFA-2A [Suspect]
     Active Substance: INTERFERON ALFA-2A
     Indication: HEPATITIS C
     Dosage: UNK
  3. REBETOL [Suspect]
     Active Substance: RIBAVIRIN
     Indication: HEPATITIS C
     Dosage: UNK
     Route: 048
  4. TELAPREVIR [Suspect]
     Active Substance: TELAPREVIR
     Indication: HEPATITIS C
     Dosage: UNK

REACTIONS (36)
  - Dry skin [Unknown]
  - Fatigue [Unknown]
  - Rash [Unknown]
  - Vascular rupture [Unknown]
  - Anaemia [Unknown]
  - Mouth ulceration [Unknown]
  - Alopecia [Unknown]
  - Pyrexia [Unknown]
  - Headache [Unknown]
  - Anal pruritus [Unknown]
  - Cerebrovascular accident [Unknown]
  - Thrombocytopenia [Unknown]
  - Depression [Unknown]
  - Diarrhoea [Unknown]
  - Myalgia [Unknown]
  - Chest pain [Unknown]
  - Nausea [Unknown]
  - Chills [Unknown]
  - Influenza like illness [Unknown]
  - Pruritus [Unknown]
  - Weight decreased [Unknown]
  - Paranoia [Unknown]
  - Drug reaction with eosinophilia and systemic symptoms [Unknown]
  - Neutropenia [Unknown]
  - Arthralgia [Unknown]
  - Decreased appetite [Unknown]
  - Vomiting [Unknown]
  - Anorectal discomfort [Unknown]
  - Gastrooesophageal reflux disease [Unknown]
  - Pain [Unknown]
  - Suicidal ideation [Unknown]
  - Abdominal pain [Unknown]
  - Amnesia [Unknown]
  - Anxiety [Unknown]
  - Insomnia [Unknown]
  - Dyspnoea [Unknown]
